FAERS Safety Report 13621383 (Version 1)
Quarter: 2017Q2

REPORT INFORMATION
  Report Type: Spontaneous
  Country: US (occurrence: US)
  Receive Date: 20170607
  Receipt Date: 20170607
  Transmission Date: 20170830
  Serious: No
  Sender: FDA-Public Use
  Company Number: US-PFIZER INC-2017245834

PATIENT
  Sex: Female

DRUGS (2)
  1. NEURONTIN [Suspect]
     Active Substance: GABAPENTIN
     Dosage: 700 MG, 3X/DAY
  2. NEURONTIN [Suspect]
     Active Substance: GABAPENTIN
     Dosage: 800 MG, 3X/DAY

REACTIONS (2)
  - Prescribed overdose [Unknown]
  - Drug ineffective [Unknown]
